FAERS Safety Report 15208056 (Version 1)
Quarter: 2018Q3

REPORT INFORMATION
  Report Type: Spontaneous
  Country: US (occurrence: US)
  Receive Date: 20180727
  Receipt Date: 20180727
  Transmission Date: 20181010
  Serious: Yes (Other)
  Sender: FDA-Public Use
  Company Number: US-009507513-1807USA007730

PATIENT
  Age: 53 Year
  Sex: Male

DRUGS (2)
  1. PROVENTIL [Suspect]
     Active Substance: ALBUTEROL
     Dosage: 4?6 TIMES A DAY
  2. PREDNISONE. [Concomitant]
     Active Substance: PREDNISONE
     Dosage: 40 MG, TWICE DAILY
     Route: 048

REACTIONS (2)
  - Lactic acidosis [Unknown]
  - Product use issue [Unknown]
